FAERS Safety Report 20438743 (Version 2)
Quarter: 2022Q1

REPORT INFORMATION
  Report Type: Report from Study
  Country: FR (occurrence: FR)
  Receive Date: 20220207
  Receipt Date: 20220211
  Transmission Date: 20220423
  Serious: Yes (Death, Hospitalization)
  Sender: FDA-Public Use
  Company Number: FR-GLAXOSMITHKLINE-FR2022GSK018333

PATIENT
  Age: 64 Year
  Sex: Male

DRUGS (1)
  1. NIRAPARIB [Suspect]
     Active Substance: NIRAPARIB
     Indication: Neoplasm
     Dosage: 200 MG
     Route: 048
     Dates: start: 20220117, end: 20220122

REACTIONS (1)
  - Tumour pain [Fatal]

NARRATIVE: CASE EVENT DATE: 20220127
